FAERS Safety Report 6065717-4 (Version None)
Quarter: 2009Q1

REPORT INFORMATION
  Report Type: 
  Country: None (occurrence: None)
  Receive Date: 20090202
  Receipt Date: 20090115
  Transmission Date: 20090719
  Serious: Yes (Death, Hospitalization)
  Sender: FDA-Public Use
  Company Number: A03200803370

PATIENT
  Sex: Male

DRUGS (2)
  1. CHLOROQUINE PHOSPHATE [Suspect]
     Indication: MALARIA PROPHYLAXIS
  2. MEFLOQUINE HCL [Suspect]
     Indication: MALARIA PROPHYLAXIS

REACTIONS (7)
  - ASPERGILLOSIS [None]
  - BLOOD CULTURE POSITIVE [None]
  - BURKHOLDERIA CEPACIA INFECTION [None]
  - GRANULOMA [None]
  - LUNG INFILTRATION [None]
  - PNEUMONITIS [None]
  - PYREXIA [None]
